FAERS Safety Report 7316545-0 (Version None)
Quarter: 2011Q1

REPORT INFORMATION
  Report Type: 
  Country: None (occurrence: None)
  Receive Date: 20110226
  Receipt Date: 20101124
  Transmission Date: 20110831
  Serious: No
  Sender: FDA-Public Use
  Company Number: US-ALLERGAN-1008855US

PATIENT
  Age: 52 Year
  Sex: Female

DRUGS (5)
  1. PRIMROSE OIL [Concomitant]
  2. BOTOX COSMETIC [Suspect]
     Indication: SKIN WRINKLING
     Dosage: 40 UNITS, SINGLE
     Route: 030
     Dates: start: 20100708, end: 20100708
  3. LISINOPRIL [Concomitant]
  4. CALCIUM [Concomitant]
  5. MULTI-VITAMIN [Concomitant]

REACTIONS (1)
  - MUSCULOSKELETAL STIFFNESS [None]
